FAERS Safety Report 18530598 (Version 4)
Quarter: 2020Q4

REPORT INFORMATION
  Report Type: Spontaneous
  Country: DE (occurrence: DE)
  Receive Date: 20201121
  Receipt Date: 20201211
  Transmission Date: 20210114
  Serious: Yes (Life-Threatening, Hospitalization, Other)
  Sender: FDA-Public Use
  Company Number: DE-AUROBINDO-AUR-APL-2020-057541

PATIENT
  Age: 22 Month

DRUGS (13)
  1. URSODIOL. [Concomitant]
     Active Substance: URSODIOL
     Indication: PRODUCT USED FOR UNKNOWN INDICATION
     Dosage: 300 MILLIGRAM/SQ. METER, DAILY
     Route: 048
  2. BUSULFAN. [Suspect]
     Active Substance: BUSULFAN
     Indication: BONE MARROW CONDITIONING REGIMEN
     Dosage: UNK
     Route: 065
  3. LEVETIRACETAM. [Concomitant]
     Active Substance: LEVETIRACETAM
     Indication: PRODUCT USED FOR UNKNOWN INDICATION
     Dosage: 10 MILLIGRAM/KILOGRAM, ONCE A DAY
     Route: 048
  4. MELPHALAN. [Suspect]
     Active Substance: MELPHALAN
     Indication: BONE MARROW CONDITIONING REGIMEN
     Dosage: UNK
     Route: 065
  5. BUSULFAN. [Suspect]
     Active Substance: BUSULFAN
     Indication: AUTOLOGOUS HAEMATOPOIETIC STEM CELL TRANSPLANT
     Dosage: 1.1 MILLIGRAM/KILOGRAM,UNK (1 HR.)
     Route: 042
  6. MELPHALAN. [Suspect]
     Active Substance: MELPHALAN
     Indication: AUTOLOGOUS HAEMATOPOIETIC STEM CELL TRANSPLANT
     Dosage: 140 MILLIGRAM/SQ. METER
     Route: 042
  7. GRANULOCYTE COLONY STIMULATING FACTOR [Concomitant]
     Active Substance: GRANULOCYTE COLONY-STIMULATING FACTOR NOS
     Indication: PRODUCT USED FOR UNKNOWN INDICATION
     Dosage: 5 MICROGRAM/KILOGRAM, ONCE A DAY
     Route: 042
  8. TRANEXAMIC SOLUTION FOR INJECTION [Suspect]
     Active Substance: TRANEXAMIC ACID
     Dosage: 15 MILLIGRAM/KILOGRAM
     Route: 040
  9. URSODIOL. [Concomitant]
     Active Substance: URSODIOL
     Dosage: 600 MILLIGRAM/SQ. METER, DAILY
     Route: 048
  10. TRANEXAMIC SOLUTION FOR INJECTION [Suspect]
     Active Substance: TRANEXAMIC ACID
     Indication: HAEMORRHAGE
     Dosage: 15 MILLIGRAM PER KILOGRAM TWO BOLUSES WITHIN 2 HOUR
     Route: 042
  11. BUSULFAN. [Suspect]
     Active Substance: BUSULFAN
     Indication: NEUROBLASTOMA
  12. MELPHALAN. [Suspect]
     Active Substance: MELPHALAN
     Indication: NEUROBLASTOMA
  13. TRANEXAMIC SOLUTION FOR INJECTION [Suspect]
     Active Substance: TRANEXAMIC ACID
     Dosage: 7.5 MILLIGRAM/KILOGRAM (15 MG TA/KG BODY WEIGHT IN TWO BOLUSES)
     Route: 040

REACTIONS (2)
  - Off label use [Unknown]
  - Venoocclusive liver disease [Recovered/Resolved]
